FAERS Safety Report 18999471 (Version 3)
Quarter: 2021Q1

REPORT INFORMATION
  Report Type: Other
  Country: ES (occurrence: ES)
  Receive Date: 20210311
  Receipt Date: 20210318
  Transmission Date: 20210420
  Serious: No
  Sender: FDA-Public Use
  Company Number: ES-ROCHE-2788302

PATIENT
  Age: 53 Year
  Sex: Male
  Weight: 85 kg

DRUGS (15)
  1. OCRELIZUMAB. [Suspect]
     Active Substance: OCRELIZUMAB
     Dosage: 600 MG/500 ML?VISIT 4
     Route: 042
     Dates: start: 20210305, end: 20210305
  2. POLARAMINE [Concomitant]
     Active Substance: DEXCHLORPHENIRAMINE MALEATE
     Indication: INFUSION RELATED REACTION
     Dosage: 1 AMPULE
     Route: 042
     Dates: start: 20200904, end: 20200904
  3. URBASON [Concomitant]
     Active Substance: METHYLPREDNISOLONE
     Indication: PREMEDICATION
     Route: 042
     Dates: start: 20200904, end: 20200904
  4. POLARAMINE [Concomitant]
     Active Substance: DEXCHLORPHENIRAMINE MALEATE
     Indication: PREMEDICATION
     Dosage: 1 AMPULE
     Route: 042
     Dates: start: 20200904, end: 20200904
  5. URBASON [Concomitant]
     Active Substance: METHYLPREDNISOLONE
     Indication: INFUSION RELATED REACTION
     Route: 042
     Dates: start: 20200904, end: 20200904
  6. OCRELIZUMAB. [Suspect]
     Active Substance: OCRELIZUMAB
     Indication: PRIMARY PROGRESSIVE MULTIPLE SCLEROSIS
     Dosage: 300 MG/250 ML?VISIT 2
     Route: 042
     Dates: start: 20200904, end: 20200904
  7. URBASON [Concomitant]
     Active Substance: METHYLPREDNISOLONE
     Indication: PREMEDICATION
     Route: 042
     Dates: start: 20200918, end: 20200918
  8. PARACETAMOL [Concomitant]
     Active Substance: ACETAMINOPHEN
     Route: 048
     Dates: start: 20210305, end: 20210305
  9. POLARAMINE [Concomitant]
     Active Substance: DEXCHLORPHENIRAMINE MALEATE
     Dosage: 1 AMPULE
     Route: 042
     Dates: start: 20200918, end: 20200918
  10. PARACETAMOL [Concomitant]
     Active Substance: ACETAMINOPHEN
     Indication: PREMEDICATION
     Route: 048
     Dates: start: 20200904, end: 20200904
  11. PARACETAMOL [Concomitant]
     Active Substance: ACETAMINOPHEN
     Route: 048
     Dates: start: 20200918, end: 20200918
  12. OCRELIZUMAB. [Suspect]
     Active Substance: OCRELIZUMAB
     Indication: RELAPSING-REMITTING MULTIPLE SCLEROSIS
     Dosage: 300 MG/250 ML?VISIT 3
     Route: 042
     Dates: start: 20200918, end: 20200918
  13. POLARAMINE [Concomitant]
     Active Substance: DEXCHLORPHENIRAMINE MALEATE
     Dosage: 1 AMPULE
     Route: 042
     Dates: start: 20210305, end: 20210305
  14. URBASON [Concomitant]
     Active Substance: METHYLPREDNISOLONE
     Route: 042
     Dates: start: 20210305, end: 20210305
  15. SERUM PHYSIOLOGICAL [Concomitant]
     Active Substance: SODIUM CHLORIDE
     Indication: INFUSION RELATED REACTION
     Dosage: 1 OTHER
     Route: 042
     Dates: start: 20200904, end: 20200904

REACTIONS (1)
  - COVID-19 [Recovered/Resolved]

NARRATIVE: CASE EVENT DATE: 20201117
